FAERS Safety Report 5833158-8 (Version None)
Quarter: 2008Q3

REPORT INFORMATION
  Report Type: 
  Country: None (occurrence: None)
  Receive Date: 20080805
  Receipt Date: 20080729
  Transmission Date: 20090109
  Serious: No
  Sender: FDA-Public Use
  Company Number: JP-ELI_LILLY_AND_COMPANY-JP200806005448

PATIENT
  Sex: Male
  Weight: 91 kg

DRUGS (6)
  1. ZYPREXA [Suspect]
     Indication: SCHIZOPHRENIA
     Dosage: 10 MG, DAILY (1/D)
     Route: 048
     Dates: start: 20031027, end: 20080619
  2. HIRNAMIN [Concomitant]
     Indication: SCHIZOPHRENIA
     Dosage: 25 MG, DAILY (1/D)
     Route: 048
  3. PROMETHAZINE HCL [Concomitant]
     Indication: SCHIZOPHRENIA
     Dosage: 25 MG, DAILY (1/D)
     Route: 048
  4. NU-LOTAN [Concomitant]
     Route: 048
  5. LASIX [Concomitant]
     Route: 065
  6. CONIEL [Concomitant]
     Route: 048

REACTIONS (2)
  - EYELID PTOSIS [None]
  - OBESITY [None]
